FAERS Safety Report 18771574 (Version 1)
Quarter: 2021Q1

REPORT INFORMATION
  Report Type: Spontaneous
  Country: US (occurrence: US)
  Receive Date: 20210122
  Receipt Date: 20210122
  Transmission Date: 20210419
  Serious: No
  Sender: FDA-Public Use
  Company Number: US-PCCINC-2020-PEL-000009

PATIENT

DRUGS (3)
  1. GABLOFEN [Suspect]
     Active Substance: BACLOFEN
     Dosage: 350 MICROGRAM, PER DAY
     Route: 037
  2. GABLOFEN [Suspect]
     Active Substance: BACLOFEN
     Indication: MUSCLE SPASTICITY
     Dosage: 600 MICROGRAM, PER DAY
     Route: 037
  3. GABLOFEN [Suspect]
     Active Substance: BACLOFEN
     Dosage: 300 MICROGRAM, PER DAY
     Route: 037

REACTIONS (6)
  - Device breakage [Recovered/Resolved]
  - Pocket erosion [Recovered/Resolved]
  - Infection [Recovered/Resolved]
  - Device extrusion [Recovered/Resolved]
  - Muscle spasticity [Recovered/Resolved]
  - Device leakage [Recovered/Resolved]
